FAERS Safety Report 10195617 (Version 4)
Quarter: 2014Q3

REPORT INFORMATION
  Report Type: Spontaneous
  Country: FI (occurrence: FI)
  Receive Date: 20140527
  Receipt Date: 20140722
  Transmission Date: 20150326
  Serious: Yes (Other)
  Sender: FDA-Public Use
  Company Number: FI-ROCHE-1406293

PATIENT
  Age: 29 Year
  Sex: Female

DRUGS (9)
  1. AVAMYS [Concomitant]
     Active Substance: FLUTICASONE FUROATE
  2. TRIPTYL [Concomitant]
  3. XYZAL [Concomitant]
     Active Substance: LEVOCETIRIZINE DIHYDROCHLORIDE
  4. PANADOL [Concomitant]
     Active Substance: ACETAMINOPHEN
  5. XOLAIR [Suspect]
     Active Substance: OMALIZUMAB
     Indication: ALLERGIC RESPIRATORY SYMPTOM
     Route: 065
     Dates: start: 20140318, end: 20140318
  6. THYROXIN [Concomitant]
     Active Substance: LEVOTHYROXINE
  7. XOLAIR [Suspect]
     Active Substance: OMALIZUMAB
     Indication: ASTHMA
     Route: 065
     Dates: start: 20140218
  8. ALVESCO [Concomitant]
     Active Substance: CICLESONIDE
  9. SYMBICORT [Concomitant]
     Active Substance: BUDESONIDE\FORMOTEROL FUMARATE DIHYDRATE

REACTIONS (2)
  - Dermatitis [Recovered/Resolved]
  - Erythema multiforme [Recovered/Resolved]

NARRATIVE: CASE EVENT DATE: 201403
